FAERS Safety Report 9882224 (Version 3)
Quarter: 2015Q1

REPORT INFORMATION
  Report Type: Spontaneous
  Country: US (occurrence: US)
  Receive Date: 20140207
  Receipt Date: 20150318
  Transmission Date: 20150721
  Serious: Yes (Hospitalization, Other)
  Sender: FDA-Public Use
  Company Number: US-AMGEN-USASP2014007367

PATIENT
  Age: 92 Year
  Sex: Male

DRUGS (4)
  1. PROCRIT [Suspect]
     Active Substance: ERYTHROPOIETIN
     Indication: PRODUCT USED FOR UNKNOWN INDICATION
     Dosage: UNK
     Route: 065
     Dates: end: 201310
  2. IRON [Concomitant]
     Active Substance: IRON
  3. PREDNISONE. [Concomitant]
     Active Substance: PREDNISONE
     Dosage: UNK
     Dates: start: 20130118
  4. ARANESP [Suspect]
     Active Substance: DARBEPOETIN ALFA
     Indication: PRODUCT USED FOR UNKNOWN INDICATION
     Dosage: 300 MUG, EVERY 3 TO 4 WEEKS AS NEEDED
     Route: 065
     Dates: start: 2013

REACTIONS (2)
  - Therapeutic response decreased [Unknown]
  - Myelodysplastic syndrome [Unknown]
